FAERS Safety Report 16751523 (Version 2)
Quarter: 2019Q3

REPORT INFORMATION
  Report Type: Spontaneous
  Country: CN (occurrence: CN)
  Receive Date: 20190828
  Receipt Date: 20190905
  Transmission Date: 20191005
  Serious: Yes (Other)
  Sender: FDA-Public Use
  Company Number: CN-CHIESI USA, INC.-CN-2019CHI000324

PATIENT

DRUGS (2)
  1. CUROSURF [Suspect]
     Active Substance: PORACTANT ALFA
     Indication: NEONATAL RESPIRATORY DISTRESS SYNDROME
     Dosage: 1.5 ML, SINGLE
     Route: 007
     Dates: start: 20190811, end: 20190811
  2. CUROSURF [Suspect]
     Active Substance: PORACTANT ALFA
     Dosage: 1.5 ML, SINGLE
     Route: 007
     Dates: start: 20190811, end: 20190811

REACTIONS (4)
  - Product administration error [Recovered/Resolved]
  - Neonatal hypoxia [Recovered/Resolved]
  - Off label use [Not Recovered/Not Resolved]
  - Underdose [Not Recovered/Not Resolved]

NARRATIVE: CASE EVENT DATE: 20190811
